FAERS Safety Report 10141764 (Version 1)
Quarter: 2014Q2

REPORT INFORMATION
  Report Type: Spontaneous
  Country: US (occurrence: US)
  Receive Date: 20140429
  Receipt Date: 20140429
  Transmission Date: 20141212
  Serious: Yes (Other)
  Sender: FDA-Public Use
  Company Number: US-PFIZER INC-2014116703

PATIENT
  Age: 45 Year
  Sex: Female
  Weight: 55.33 kg

DRUGS (2)
  1. LYRICA [Suspect]
     Indication: VAGUS NERVE DISORDER
     Dosage: 75 MG, AS NEEDED
     Route: 048
     Dates: start: 2013
  2. LYRICA [Suspect]
     Indication: COUGH
     Dosage: 150 MG, 2X/DAY
     Route: 048
     Dates: start: 20140421, end: 20140423

REACTIONS (4)
  - Convulsion [Recovering/Resolving]
  - Syncope [Recovering/Resolving]
  - Fall [Unknown]
  - Back pain [Unknown]
